FAERS Safety Report 13587059 (Version 1)
Quarter: 2017Q2

REPORT INFORMATION
  Report Type: Report from Study
  Country: GB (occurrence: GB)
  Receive Date: 20170526
  Receipt Date: 20170526
  Transmission Date: 20170830
  Serious: Yes (Other)
  Sender: FDA-Public Use
  Company Number: GB-ALIMERA SCIENCES INC.-GB-IL-2016-002469

PATIENT

DRUGS (4)
  1. ILUVIEN [Suspect]
     Active Substance: FLUOCINOLONE ACETONIDE
     Indication: DIABETIC RETINAL OEDEMA
     Dosage: 0.25 ?G, QD - RIGHT EYE
     Route: 031
     Dates: start: 20140722
  2. ILUVIEN [Suspect]
     Active Substance: FLUOCINOLONE ACETONIDE
     Dosage: 0.25 ?G, QD - LEFT EYE
     Route: 031
     Dates: start: 20150312
  3. G. CHLORAMPHEMICOL 0.5% EYE DROPS [Concomitant]
     Indication: INFECTION PROPHYLAXIS
     Dosage: UNK, QID RIGHT EYE FOR ONE WEEK
     Dates: start: 20140722, end: 20140729
  4. G. CHLORAMPHEMICOL 0.5% EYE DROPS [Concomitant]
     Dosage: LEFT EYE
     Dates: start: 20150312, end: 20150319

REACTIONS (1)
  - Vitreous haemorrhage [Recovered/Resolved]

NARRATIVE: CASE EVENT DATE: 20150318
